FAERS Safety Report 12110352 (Version 1)
Quarter: 2016Q1

REPORT INFORMATION
  Report Type: Spontaneous
  Country: JP (occurrence: JP)
  Receive Date: 20160224
  Receipt Date: 20160224
  Transmission Date: 20160526
  Serious: Yes (Other)
  Sender: FDA-Public Use
  Company Number: JP-SA-2016SA034418

PATIENT
  Age: 55 Year
  Sex: Male

DRUGS (5)
  1. ELPLAT [Suspect]
     Active Substance: OXALIPLATIN
     Indication: PANCREATIC CARCINOMA
     Dosage: INJECTION
     Route: 041
     Dates: start: 201401
  2. 5-FU [Concomitant]
     Active Substance: FLUOROURACIL
     Dosage: BOLUS
     Dates: start: 201401
  3. CAMPTO [Suspect]
     Active Substance: IRINOTECAN
     Indication: PANCREATIC CARCINOMA
     Dosage: INJECTION
     Route: 041
     Dates: start: 201401
  4. 5-FU [Concomitant]
     Active Substance: FLUOROURACIL
     Dosage: CONTINUOUS INFUSION
     Dates: start: 201401
  5. CALCIUM LEVOFOLINATE [Concomitant]
     Active Substance: LEVOLEUCOVORIN CALCIUM
     Dates: start: 201401

REACTIONS (4)
  - Neutrophil count decreased [Unknown]
  - Hyperkalaemia [Unknown]
  - Diarrhoea [Unknown]
  - Decreased appetite [Unknown]
